FAERS Safety Report 6836569-7 (Version None)
Quarter: 2010Q3

REPORT INFORMATION
  Report Type: 
  Country: None (occurrence: None)
  Receive Date: 20100713
  Receipt Date: 20100629
  Transmission Date: 20110219
  Serious: No
  Sender: FDA-Public Use
  Company Number: US-B.I. PHARMACEUTICALS,INC./RIDGEFIELD-2010-BP-07437BP

PATIENT
  Age: 32 Year
  Sex: Male

DRUGS (1)
  1. ZANTAC 75 [Suspect]
     Indication: DYSPEPSIA
     Dosage: 1-6 DAILY
     Route: 048
     Dates: start: 20100101

REACTIONS (1)
  - DYSPEPSIA [None]
